FAERS Safety Report 4502356-8 (Version None)
Quarter: 2004Q4

REPORT INFORMATION
  Report Type: 
  Country: None (occurrence: None)
  Receive Date: 20041110
  Receipt Date: 20041028
  Transmission Date: 20050328
  Serious: Yes (Hospitalization, Other)
  Sender: FDA-Public Use
  Company Number: 2004058282

PATIENT
  Age: 43 Year
  Sex: Male

DRUGS (4)
  1. RELPAX [Suspect]
     Indication: MIGRAINE
     Dosage: 20 MG (20 MG, 1 IN 1 D), ORAL
     Route: 048
     Dates: start: 20040820, end: 20040820
  2. DICLOFENAC SODIUM [Suspect]
     Indication: MIGRAINE
     Dosage: RECTAL
     Route: 054
     Dates: start: 20040820
  3. OSMOSAL (GLUCOSE, POTASSIUM CHLORIDE, SODIUM CHLORIDE, SODIUM CHLORIDE [Suspect]
     Indication: MIGRAINE
     Dosage: INTRAVENOUS
     Route: 042
     Dates: start: 20040820
  4. ALL OTHER THERAPEUTIC PRODUCTS (ALL OTHER THERAPEUTIC PRODUCTS) [Concomitant]

REACTIONS (21)
  - ANEURYSM [None]
  - BLOOD POTASSIUM DECREASED [None]
  - BLOOD PRESSURE DIASTOLIC DECREASED [None]
  - BLOOD PRESSURE INCREASED [None]
  - BLOOD PRESSURE SYSTOLIC INCREASED [None]
  - DEPRESSED LEVEL OF CONSCIOUSNESS [None]
  - DIPLOPIA [None]
  - EPILEPSY [None]
  - GLAUCOMA [None]
  - HAEMOGLOBIN DECREASED [None]
  - HEART RATE INCREASED [None]
  - HYPERVENTILATION [None]
  - INTRACRANIAL ANEURYSM [None]
  - NEUTROPHIL PERCENTAGE INCREASED [None]
  - PROTHROMBIN TIME PROLONGED [None]
  - RESPIRATORY ARREST [None]
  - RESPIRATORY RATE DECREASED [None]
  - SPINAL DISORDER [None]
  - STRESS SYMPTOMS [None]
  - SUBARACHNOID HAEMORRHAGE [None]
  - VITH NERVE PARALYSIS [None]
